FAERS Safety Report 8309062-2 (Version None)
Quarter: 2012Q2

REPORT INFORMATION
  Report Type: 
  Country: None (occurrence: None)
  Receive Date: 20120424
  Receipt Date: 20120418
  Transmission Date: 20120825
  Serious: Yes (Death, Hospitalization)
  Sender: FDA-Public Use
  Company Number: US-ROCHE-1051083

PATIENT
  Age: 46 Year
  Sex: Female
  Weight: 109.4 kg

DRUGS (7)
  1. BACTRIM [Concomitant]
     Route: 048
  2. POTASSIUM CHLORIDE [Concomitant]
     Route: 048
  3. VISMODEGIB [Suspect]
     Indication: MULTIPLE MYELOMA
     Dosage: LAST DOSE PRIOR TO SAE ON 05/MAR/2012. 28 DAY CYCLE. REMOVED FROM PROTOCOL TREATMENT ON 06/MAR/2012
     Route: 048
     Dates: start: 20120201, end: 20120305
  4. VALTREX [Concomitant]
     Route: 048
  5. SYNTHROID [Concomitant]
     Route: 048
  6. MAGNESIUM OXIDE [Concomitant]
     Route: 048
  7. GABAPENTIN [Concomitant]
     Route: 048

REACTIONS (2)
  - HYPONATRAEMIA [None]
  - DISEASE PROGRESSION [None]
